FAERS Safety Report 20061461 (Version 2)
Quarter: 2021Q4

REPORT INFORMATION
  Report Type: Spontaneous
  Country: CA (occurrence: CA)
  Receive Date: 20211112
  Receipt Date: 20211217
  Transmission Date: 20220303
  Serious: No
  Sender: FDA-Public Use
  Company Number: CA-PFIZER INC-202101381237

PATIENT
  Age: 15 Year
  Sex: Male

DRUGS (2)
  1. GENOTROPIN [Suspect]
     Active Substance: SOMATROPIN
     Indication: Short stature
     Dosage: 1050 UG, 6 DOSE EVERY WEEK
     Route: 058
     Dates: start: 201905
  2. GENOTROPIN [Suspect]
     Active Substance: SOMATROPIN
     Dosage: 1650 UG 6 DOSE EVERY WEEK
     Route: 058

REACTIONS (2)
  - Product physical consistency issue [Unknown]
  - Poor quality device used [Unknown]
